FAERS Safety Report 8907929 (Version 1)
Quarter: 2012Q4

REPORT INFORMATION
  Report Type: 
  Country: GB (occurrence: GB)
  Receive Date: 20121113
  Receipt Date: 20121113
  Transmission Date: 20130627
  Serious: Yes (Life-Threatening, Hospitalization)
  Sender: FDA-Public Use
  Company Number: GB-WATSON-2012-18990

PATIENT
  Age: 88 Year

DRUGS (15)
  1. AMOXICILLIN [Suspect]
     Indication: URINARY TRACT INFECTION
     Dosage: 500 mg, tid. Patient had 5 doses
     Route: 065
     Dates: start: 20110315
  2. TRIMETHOPRIM [Suspect]
     Dosage: 200 mg, bid
     Route: 048
     Dates: start: 20100510, end: 20100520
  3. TRIMETHOPRIM [Suspect]
     Dosage: 200 mg, bid
     Route: 048
     Dates: start: 20110313
  4. CIPROFLOXACIN HYDROCHLORIDE (UNKNOWN) [Suspect]
     Indication: PRODUCT USED FOR UNKNOWN INDICATION
     Dosage: 200 mg, bid, renal dose
     Route: 065
     Dates: start: 20110316
  5. CIPROFLOXACIN HYDROCHLORIDE (UNKNOWN) [Suspect]
     Dosage: 400 mg, daily, Renal dose
     Route: 042
     Dates: start: 20110321
  6. BENZYLPENICILLIN [Suspect]
     Indication: CELLULITIS
     Dosage: 1.2 g, q6h. Patient had 16 doses
     Route: 042
     Dates: start: 20110325
  7. FLUCLOXACILLIN [Suspect]
     Indication: CELLULITIS
     Dosage: 500 mg, q6h. Patient had 15 doses
     Route: 042
     Dates: start: 20110325
  8. FLUCLOXACILLIN [Suspect]
     Indication: HERPES ZOSTER
     Dosage: 500 mg, q6h
     Route: 042
     Dates: start: 20110321
  9. FLUCLOXACILLIN [Suspect]
     Dosage: 250 mg, q6h
     Route: 048
     Dates: start: 20101206
  10. FLUCLOXACILLIN [Suspect]
     Dosage: 500 mg, q6h
     Route: 065
     Dates: start: 20110315
  11. AMOXICILLIN-CLAVULANATE [Suspect]
     Indication: PNEUMONIA
     Dosage: 375 mg, tid
     Route: 065
     Dates: start: 20100406
  12. AMOXICILLIN-CLAVULANATE [Suspect]
     Dosage: 625 mg, tid
     Route: 065
     Dates: start: 20110407
  13. AMOXICILLIN-CLAVULANATE [Suspect]
     Dosage: 1.2 g, tid. Patient had 6 doses
     Route: 042
     Dates: start: 20110409
  14. PIPERACILLIN + TAZOBACTAM [Suspect]
     Indication: PNEUMONIA
     Dosage: UNK,
     Route: 065
     Dates: start: 20110404
  15. PIPERACILLIN + TAZOBACTAM [Suspect]
     Dosage: 4.5 g, tid
     Route: 042
     Dates: start: 20110413

REACTIONS (2)
  - Diarrhoea [Unknown]
  - Clostridium difficile infection [Unknown]
